FAERS Safety Report 6733477-7 (Version None)
Quarter: 2010Q2

REPORT INFORMATION
  Report Type: 
  Country: None (occurrence: None)
  Receive Date: 20100520
  Receipt Date: 20100507
  Transmission Date: 20101027
  Serious: Yes (Hospitalization)
  Sender: FDA-Public Use
  Company Number: PHHY2010VN29635

PATIENT
  Age: 86 Year
  Sex: Female
  Weight: 45 kg

DRUGS (8)
  1. ACLASTA [Suspect]
     Indication: OSTEOPOROSIS
     Dosage: UNK
     Route: 042
     Dates: start: 20100427
  2. MIACALCIN [Concomitant]
     Dosage: 50 IU, DAILY
     Dates: start: 20100414, end: 20100427
  3. MOBIC [Concomitant]
  4. PARA GABATIN [Concomitant]
  5. CALCI-D [Concomitant]
  6. AMLOR [Concomitant]
  7. ZESTRIL [Concomitant]
  8. CADIMEZOL [Concomitant]

REACTIONS (3)
  - HYPONATRAEMIA [None]
  - SOMNOLENCE [None]
  - VOMITING [None]
